FAERS Safety Report 5477282-0 (Version None)
Quarter: 2007Q3

REPORT INFORMATION
  Report Type: 
  Country: None (occurrence: None)
  Receive Date: 20070904
  Receipt Date: 20070510
  Transmission Date: 20080115
  Serious: No
  Sender: FDA-Public Use
  Company Number: PHEH2007US07351

PATIENT
  Age: 84 Year
  Sex: Female

DRUGS (9)
  1. ENABLEX [Suspect]
     Dosage: 75 MG INSTEAD OF 7.5 MG DAILY FOR ONE MONTH, ORAL
     Route: 048
  2. PLAVIX [Concomitant]
  3. PRILOSEC [Concomitant]
  4. NITRO (GLYCERYL TRINITRATE) [Concomitant]
  5. DIOVAN [Concomitant]
  6. LIPITOR [Concomitant]
  7. TOPROL-XL [Concomitant]
  8. ASPIRIN [Concomitant]
  9. KEFLEX [Concomitant]

REACTIONS (1)
  - ACCIDENTAL OVERDOSE [None]
